FAERS Safety Report 9233287 (Version 1)
Quarter: 2013Q2

REPORT INFORMATION
  Report Type: Spontaneous
  Country: US (occurrence: US)
  Receive Date: 20130416
  Receipt Date: 20130416
  Transmission Date: 20140414
  Serious: No
  Sender: FDA-Public Use
  Company Number: US-BANPHARM-20130896

PATIENT
  Age: 77 Year
  Sex: Female
  Weight: 66.22 kg

DRUGS (6)
  1. ALEVE LIQUID GELS 220MG [Suspect]
     Indication: PAIN
     Dosage: 2 DF, ONLY ONE TIME,
     Route: 048
     Dates: start: 20120403, end: 20120403
  2. ATIVAN [Concomitant]
  3. ATENOLOL [Concomitant]
  4. TRAMADOL [Concomitant]
  5. VITAMIN D3 [Concomitant]
  6. ENALAPRIL [Concomitant]

REACTIONS (3)
  - Discomfort [Not Recovered/Not Resolved]
  - Fatigue [Not Recovered/Not Resolved]
  - Dyspnoea [Not Recovered/Not Resolved]
